FAERS Safety Report 4634041-6 (Version None)
Quarter: 2005Q2

REPORT INFORMATION
  Report Type: 
  Country: None (occurrence: None)
  Receive Date: 20050413
  Receipt Date: 20050331
  Transmission Date: 20051028
  Serious: Yes (Hospitalization, Other)
  Sender: FDA-Public Use
  Company Number: DE-JNJFOC-20050400049

PATIENT
  Sex: Female

DRUGS (10)
  1. DURAGESIC-100 [Suspect]
     Route: 062
  2. EUTHYROX [Concomitant]
     Indication: HYPOTHYROIDISM
     Route: 065
  3. METHOTREXATE [Concomitant]
     Indication: PSORIASIS
     Route: 065
  4. PASPERTIN [Concomitant]
     Indication: PROPHYLAXIS
     Route: 065
  5. DELIX [Concomitant]
     Route: 065
  6. NITRENDIPIN [Concomitant]
     Indication: DEPRESSION
     Route: 065
  7. FOLIC ACID [Concomitant]
     Indication: DEPRESSION
     Route: 065
  8. TREVILOR [Concomitant]
     Indication: DEPRESSION
     Route: 065
  9. L-DOPA [Concomitant]
     Indication: PARKINSON'S DISEASE
     Route: 065
  10. BENSERAZIDE [Concomitant]
     Indication: PARKINSON'S DISEASE
     Route: 065

REACTIONS (3)
  - COGNITIVE DISORDER [None]
  - LOSS OF CONSCIOUSNESS [None]
  - MIOSIS [None]
